FAERS Safety Report 7534112-0 (Version None)
Quarter: 2011Q2

REPORT INFORMATION
  Report Type: 
  Country: None (occurrence: None)
  Receive Date: 20110608
  Receipt Date: 20061016
  Transmission Date: 20111010
  Serious: Yes (Other)
  Sender: FDA-Public Use
  Company Number: PHMT2006CA01968

PATIENT
  Sex: Female

DRUGS (3)
  1. DIOVAN [Suspect]
     Dosage: 80 MG
     Route: 048
     Dates: start: 20030101
  2. DIOVAN HCT [Suspect]
     Dosage: 160/12.5 MG
     Route: 048
     Dates: start: 20040101
  3. DIOVAN [Suspect]
     Dosage: 160 MG
     Route: 048
     Dates: start: 20040101

REACTIONS (3)
  - FLUID RETENTION [None]
  - WEIGHT INCREASED [None]
  - WEIGHT DECREASED [None]
